FAERS Safety Report 21766991 (Version 4)
Quarter: 2025Q1

REPORT INFORMATION
  Report Type: Spontaneous
  Country: US (occurrence: US)
  Receive Date: 20221222
  Receipt Date: 20250218
  Transmission Date: 20250409
  Serious: No
  Sender: PFIZER
  Company Number: US-PFIZER INC-202201341075

PATIENT
  Age: 73 Year
  Sex: Male
  Weight: 89.36 kg

DRUGS (3)
  1. GENOTROPIN [Suspect]
     Active Substance: SOMATROPIN
     Indication: Pituitary tumour
     Dosage: 0.4 MG, DAILY (DAILY (0.4MG DAILY BY INJECTION)
     Dates: start: 2018, end: 20221204
  2. GENOTROPIN [Suspect]
     Active Substance: SOMATROPIN
     Indication: Hypogonadism male
  3. GENOTROPIN [Suspect]
     Active Substance: SOMATROPIN

REACTIONS (4)
  - Device use issue [Unknown]
  - Device failure [Unknown]
  - Drug dose omission by device [Not Recovered/Not Resolved]
  - Off label use [Unknown]

NARRATIVE: CASE EVENT DATE: 20221204
